FAERS Safety Report 7826944-6 (Version None)
Quarter: 2011Q4

REPORT INFORMATION
  Report Type: 
  Country: None (occurrence: None)
  Receive Date: 20111018
  Receipt Date: 20110930
  Transmission Date: 20120403
  Serious: Yes (Other)
  Sender: FDA-Public Use
  Company Number: 2011MA014624

PATIENT
  Age: 78 Year
  Sex: Male

DRUGS (3)
  1. SODIUM CHLORIDE [Suspect]
     Indication: NON-SMALL CELL LUNG CANCER
     Dosage: 100 ML; IV
     Route: 042
  2. VINORELBINE [Suspect]
     Indication: NON-SMALL CELL LUNG CANCER
     Dosage: 125 MG/M2, IV
     Route: 042
  3. VINORELBINE [Suspect]
     Indication: NON-SMALL CELL LUNG CANCER
     Dosage: 60 MG/M2;PO
     Route: 048

REACTIONS (7)
  - SKIN EXFOLIATION [None]
  - ERYTHEMA [None]
  - PYREXIA [None]
  - PAIN IN EXTREMITY [None]
  - OEDEMA PERIPHERAL [None]
  - EXTRAVASATION [None]
  - SKIN ULCER [None]
